FAERS Safety Report 21342497 (Version 1)
Quarter: 2022Q3

REPORT INFORMATION
  Report Type: Spontaneous
  Country: US (occurrence: None)
  Receive Date: 20220915
  Receipt Date: 20220915
  Transmission Date: 20221026
  Serious: Yes (unspecified)
  Sender: FDA-Public Use
  Company Number: None

PATIENT
  Age: 16 Year
  Sex: Male
  Weight: 54.43 kg

DRUGS (1)
  1. SUPPRELIN [Suspect]
     Active Substance: HISTRELIN ACETATE
     Dates: start: 20201007

REACTIONS (2)
  - Device dislocation [None]
  - Complication of device removal [None]

NARRATIVE: CASE EVENT DATE: 20220126
